FAERS Safety Report 10270103 (Version 1)
Quarter: 2014Q3

REPORT INFORMATION
  Report Type: Spontaneous
  Country: TR (occurrence: TR)
  Receive Date: 20140701
  Receipt Date: 20140701
  Transmission Date: 20150326
  Serious: Yes (Hospitalization)
  Sender: FDA-Public Use
  Company Number: TR-ROXANE LABORATORIES, INC.-2014-RO-00981RO

PATIENT
  Sex: Male

DRUGS (1)
  1. PROPRANOLOL [Suspect]
     Active Substance: PROPRANOLOL\PROPRANOLOL HYDROCHLORIDE
     Indication: INTRA-ABDOMINAL HAEMANGIOMA
     Route: 065

REACTIONS (1)
  - Hyperkalaemia [Recovered/Resolved]
